FAERS Safety Report 16121247 (Version 1)
Quarter: 2019Q1

REPORT INFORMATION
  Report Type: Spontaneous
  Country: GB (occurrence: GB)
  Receive Date: 20190327
  Receipt Date: 20190327
  Transmission Date: 20190418
  Serious: Yes (Hospitalization)
  Sender: FDA-Public Use
  Company Number: GB-ACCORD-115233

PATIENT
  Age: 67 Year
  Sex: Female
  Weight: 68.4 kg

DRUGS (4)
  1. AMITRIPTYLINE [Suspect]
     Active Substance: AMITRIPTYLINE
     Indication: DEPRESSION
     Dosage: NIGHT
     Route: 048
     Dates: start: 20180901, end: 20181128
  2. PROPRANOLOL [Concomitant]
     Active Substance: PROPRANOLOL HYDROCHLORIDE
  3. ESOMEPRAZOLE/ESOMEPRAZOLE MAGNESIUM/ESOMEPRAZOLE SODIUM [Concomitant]
  4. ADCAL-D3 [Concomitant]
     Active Substance: CALCIUM CARBONATE\CHOLECALCIFEROL

REACTIONS (12)
  - Memory impairment [Unknown]
  - Decreased appetite [Unknown]
  - Staring [Unknown]
  - Encephalopathy [Unknown]
  - Gait disturbance [Unknown]
  - Orthostatic hypotension [Unknown]
  - Confusional state [Recovering/Resolving]
  - Jaundice [Unknown]
  - Abnormal loss of weight [Unknown]
  - Constipation [Unknown]
  - Exercise tolerance decreased [Unknown]
  - Dysarthria [Unknown]
